FAERS Safety Report 9736983 (Version 1)
Quarter: 2013Q4

REPORT INFORMATION
  Report Type: Spontaneous
  Country: US (occurrence: US)
  Receive Date: 20131206
  Receipt Date: 20131206
  Transmission Date: 20140711
  Serious: Yes (Hospitalization)
  Sender: FDA-Public Use
  Company Number: US-GILEAD-2009-0023069

PATIENT
  Sex: Female
  Weight: 101.6 kg

DRUGS (17)
  1. LETAIRIS [Suspect]
     Indication: PULMONARY ARTERIAL HYPERTENSION
     Route: 048
     Dates: start: 20090624
  2. WARFARIN [Concomitant]
  3. LOTREL [Concomitant]
  4. FUROSEMIDE [Concomitant]
  5. ADVAIR [Concomitant]
  6. ALBUTEROL [Concomitant]
  7. K-DUR [Concomitant]
  8. LOVASTATIN [Concomitant]
  9. METFORMIN HCL [Concomitant]
  10. GLIMEPIRIDE [Concomitant]
  11. ACTOS [Concomitant]
  12. CLONIDINE [Concomitant]
  13. HYDRALAZINE [Concomitant]
  14. CALCIUM PLUS [Concomitant]
  15. CALCIUM +D [Concomitant]
  16. VITAMIN B-12 [Concomitant]
  17. VITAMIN E [Concomitant]

REACTIONS (1)
  - Swelling [Unknown]
